FAERS Safety Report 6491368-3 (Version None)
Quarter: 2009Q4

REPORT INFORMATION
  Report Type: 
  Country: None (occurrence: None)
  Receive Date: 20091211
  Receipt Date: 20091207
  Transmission Date: 20100525
  Serious: Yes (Death)
  Sender: FDA-Public Use
  Company Number: PHHO2009FR10554

PATIENT
  Sex: Male
  Weight: 60 kg

DRUGS (1)
  1. ALDESLEUKIN C-ALDE+ [Suspect]
     Indication: ACUTE MYELOID LEUKAEMIA
     Dosage: UNK
     Dates: start: 20000124, end: 20001130

REACTIONS (1)
  - OBLITERATIVE BRONCHIOLITIS [None]
